FAERS Safety Report 8380055-2 (Version None)
Quarter: 2012Q2

REPORT INFORMATION
  Report Type: 
  Country: None (occurrence: None)
  Receive Date: 20120523
  Receipt Date: 20120511
  Transmission Date: 20120825
  Serious: Yes (Other)
  Sender: FDA-Public Use
  Company Number: US-GLAXOSMITHKLINE-A0949454A

PATIENT
  Age: 57 Year
  Sex: Female
  Weight: 88 kg

DRUGS (7)
  1. FLOLAN [Suspect]
     Indication: PULMONARY ARTERIAL HYPERTENSION
     Dosage: 42.7NGKM CONTINUOUS
     Route: 042
     Dates: start: 20100527
  2. ALBUTEROL [Concomitant]
  3. FUROSEMIDE [Concomitant]
  4. REVATIO [Concomitant]
  5. POTASSIUM CHLORIDE [Concomitant]
  6. SPIRONOLACTONE [Concomitant]
  7. WARFARIN SODIUM [Concomitant]

REACTIONS (4)
  - DIARRHOEA [None]
  - DEVICE RELATED INFECTION [None]
  - CATHETER SITE SWELLING [None]
  - CATHETER SITE DISCHARGE [None]
